FAERS Safety Report 6927914-2 (Version None)
Quarter: 2010Q3

REPORT INFORMATION
  Report Type: 
  Country: None (occurrence: None)
  Receive Date: 20100817
  Receipt Date: 20100805
  Transmission Date: 20110219
  Serious: Yes (Life-Threatening, Hospitalization)
  Sender: FDA-Public Use
  Company Number: FR-PFIZER INC-2010098930

PATIENT
  Age: 17 Year
  Sex: Female

DRUGS (4)
  1. ADRIBLASTINE [Suspect]
     Indication: BURKITT'S LYMPHOMA
     Dosage: 60 MG/M2, SINGLE
     Route: 042
     Dates: start: 20090802
  2. VINCRISTINE [Suspect]
     Indication: BURKITT'S LYMPHOMA
     Dosage: 2 MG, SINGLE
     Route: 042
     Dates: start: 20090801
  3. METHOTREXATE [Suspect]
     Indication: BURKITT'S LYMPHOMA
     Dosage: 3 G, SINGLE
     Route: 042
     Dates: start: 20090801
  4. ENDOXAN [Suspect]
     Indication: BURKITT'S LYMPHOMA
     Dosage: 250 MG/M2, 2X/DAY
     Route: 042
     Dates: start: 20090802, end: 20090804

REACTIONS (1)
  - RADIATION MUCOSITIS [None]
